FAERS Safety Report 16444320 (Version 1)
Quarter: 2019Q2

REPORT INFORMATION
  Report Type: Spontaneous
  Country: US (occurrence: US)
  Receive Date: 20190618
  Receipt Date: 20190618
  Transmission Date: 20190711
  Serious: No
  Sender: FDA-Public Use
  Company Number: US-009507513-1906USA003729

PATIENT
  Sex: Female
  Weight: 54.42 kg

DRUGS (9)
  1. LYRICA [Concomitant]
     Active Substance: PREGABALIN
     Dosage: UNK
  2. PAROXETINE. [Concomitant]
     Active Substance: PAROXETINE
     Dosage: UNK
  3. AMANTADINE. [Concomitant]
     Active Substance: AMANTADINE HYDROCHLORIDE
     Dosage: UNK
  4. LINZESS [Concomitant]
     Active Substance: LINACLOTIDE
     Dosage: UNK
  5. TEMAZEPAM. [Concomitant]
     Active Substance: TEMAZEPAM
     Dosage: UNK
  6. LEVODOPA [Suspect]
     Active Substance: LEVODOPA
     Indication: PARKINSON^S DISEASE
     Dosage: UNK, AS NEEDED TWO TIMES PER DAY
     Dates: start: 20190522
  7. XADAGO [Concomitant]
     Active Substance: SAFINAMIDE MESYLATE
     Dosage: UNK
  8. GLYCOPYRROLATE. [Concomitant]
     Active Substance: GLYCOPYRROLATE
     Dosage: UNK
  9. SINEMET [Suspect]
     Active Substance: CARBIDOPA\LEVODOPA
     Dosage: UNK
     Route: 048

REACTIONS (3)
  - Gastrointestinal motility disorder [Unknown]
  - Drug ineffective [Unknown]
  - Constipation [Unknown]
